FAERS Safety Report 7680290-2 (Version None)
Quarter: 2011Q3

REPORT INFORMATION
  Report Type: 
  Country: None (occurrence: None)
  Receive Date: 20110812
  Receipt Date: 20110727
  Transmission Date: 20111222
  Serious: Yes (Hospitalization)
  Sender: FDA-Public Use
  Company Number: US-GLAXOSMITHKLINE-A0863805A

PATIENT
  Age: 60 Year
  Sex: Female

DRUGS (5)
  1. INSULIN [Concomitant]
  2. EVISTA [Concomitant]
  3. HYZAAR [Concomitant]
  4. AVANDIA [Suspect]
     Indication: DIABETES MELLITUS
     Dosage: 4MG TWICE PER DAY
     Route: 048
     Dates: start: 19990501, end: 20050501
  5. LEXAPRO [Concomitant]

REACTIONS (3)
  - CAROTID ARTERY DISEASE [None]
  - CARDIAC FAILURE CONGESTIVE [None]
  - CORONARY ARTERY DISEASE [None]
